FAERS Safety Report 4907844-8 (Version None)
Quarter: 2006Q1

REPORT INFORMATION
  Report Type: 
  Country: None (occurrence: None)
  Receive Date: 20060208
  Receipt Date: 20060125
  Transmission Date: 20060701
  Serious: Yes (Hospitalization)
  Sender: FDA-Public Use
  Company Number: 2006P1000067

PATIENT
  Age: 53 Year
  Sex: Male
  Weight: 74 kg

DRUGS (8)
  1. RETEPLASE (RETEPLASE) [Suspect]
     Indication: ACUTE MYOCARDIAL INFARCTION
     Dosage: 5 IU; 2X; IV
     Route: 042
     Dates: start: 20041007
  2. ABCIXIMAB (ABCIXIMAB) [Suspect]
     Indication: ACUTE MYOCARDIAL INFARCTION
     Dosage: 9.2 + 3.7 MG; 1X; IV - SEE IMAGE
     Route: 042
     Dates: start: 20051007, end: 20051007
  3. ABCIXIMAB (ABCIXIMAB) [Suspect]
     Indication: ACUTE MYOCARDIAL INFARCTION
     Dosage: 9.2 + 3.7 MG; 1X; IV - SEE IMAGE
     Route: 042
     Dates: start: 20051007, end: 20051007
  4. ACE INHIBITOR NOS [Concomitant]
  5. HEPARIN [Concomitant]
  6. ASPIRIN [Concomitant]
  7. CHOLESTEROL- AND TRIGLYCERIDE REDUCERS [Concomitant]
  8. BETA BLOCKING AGENTS [Concomitant]

REACTIONS (1)
  - CORONARY ARTERY DISEASE [None]
